FAERS Safety Report 19273349 (Version 3)
Quarter: 2021Q3

REPORT INFORMATION
  Report Type: Report from Study
  Country: None (occurrence: US)
  Receive Date: 20210518
  Receipt Date: 20210908
  Transmission Date: 20211014
  Serious: Yes (Hospitalization, Other)
  Sender: FDA-Public Use
  Company Number: US-ABBVIE-21K-163-3897161-00

PATIENT
  Age: 56 Year
  Sex: Female
  Weight: 72.19 kg

DRUGS (4)
  1. HUMIRA [Suspect]
     Active Substance: ADALIMUMAB
     Indication: UVEITIS
     Dosage: CITRATE FREE
     Route: 058
  2. PFIZER?BIONTECH COVID?19 VACCINE [Concomitant]
     Active Substance: TOZINAMERAN
     Dosage: 2ND DOSE
     Route: 030
     Dates: start: 20210401, end: 20210401
  3. PFIZER?BIONTECH COVID?19 VACCINE [Concomitant]
     Active Substance: TOZINAMERAN
     Indication: COVID-19 IMMUNISATION
     Dosage: 1ST DOSE
     Route: 030
     Dates: start: 20210301, end: 20210301
  4. HUMIRA [Suspect]
     Active Substance: ADALIMUMAB
     Indication: ANKYLOSING SPONDYLITIS
     Dosage: CITRATE FREE
     Route: 058
     Dates: end: 2018

REACTIONS (9)
  - Loss of consciousness [Recovered/Resolved]
  - Sinus node dysfunction [Recovering/Resolving]
  - Loss of consciousness [Unknown]
  - Uveitis [Recovered/Resolved]
  - Head injury [Unknown]
  - Syncope [Recovering/Resolving]
  - Fatigue [Unknown]
  - Spinal operation [Unknown]
  - HLA-B*27 positive [Not Recovered/Not Resolved]

NARRATIVE: CASE EVENT DATE: 2018
